FAERS Safety Report 8618508 (Version 2)
Quarter: 2013Q2

REPORT INFORMATION
  Report Type: Spontaneous
  Country: DK (occurrence: DK)
  Receive Date: 20120618
  Receipt Date: 20130412
  Transmission Date: 20140414
  Serious: Yes (Life-Threatening, Hospitalization, Other)
  Sender: FDA-Public Use
  Company Number: PHHY2012DK051090

PATIENT
  Age: 56 Year
  Sex: Female

DRUGS (3)
  1. METFORMIN [Suspect]
     Indication: TYPE 2 DIABETES MELLITUS
  2. ANGIOTENSIN CONVERTING ENZYME BLOCKERS [Concomitant]
  3. ANGIOTENSIN II ANTAGONISTS [Concomitant]

REACTIONS (10)
  - Anuria [Recovered/Resolved]
  - Hypotension [Recovered/Resolved]
  - Blood creatinine increased [Unknown]
  - Lactic acidosis [Recovered/Resolved]
  - Confusional state [Recovered/Resolved]
  - Vomiting [Recovered/Resolved]
  - Blood potassium increased [Unknown]
  - Tachypnoea [Recovered/Resolved]
  - Diarrhoea [Recovered/Resolved]
  - White blood cell count increased [Unknown]
